FAERS Safety Report 6139857-5 (Version None)
Quarter: 2009Q2

REPORT INFORMATION
  Report Type: 
  Country: None (occurrence: None)
  Receive Date: 20090401
  Receipt Date: 20090323
  Transmission Date: 20091009
  Serious: Yes (Life-Threatening, Hospitalization)
  Sender: FDA-Public Use
  Company Number: US-KINGPHARMUSA00001-K200900336

PATIENT
  Sex: Female
  Weight: 47.619 kg

DRUGS (3)
  1. LEVOXYL [Suspect]
     Indication: THYROID DISORDER
     Dosage: 25 MCG, QD
     Dates: start: 20080101
  2. LEVOXYL [Suspect]
     Dosage: 25 MCG 4X ALTERNATING WITH 50 MCG 3X WEEKLY
     Route: 048
     Dates: end: 20090301
  3. LEVOXYL [Suspect]
     Dosage: 50 MCG, QD
     Route: 048
     Dates: start: 20090301

REACTIONS (11)
  - ABDOMINAL DISTENSION [None]
  - ASTHMA [None]
  - DRUG INEFFECTIVE [None]
  - FOOD POISONING [None]
  - HYPERHIDROSIS [None]
  - PHARYNGEAL OEDEMA [None]
  - SEPSIS [None]
  - SEPTIC SHOCK [None]
  - SLEEP DISORDER [None]
  - STAPHYLOCOCCAL INFECTION [None]
  - VOMITING [None]
